FAERS Safety Report 19286198 (Version 1)
Quarter: 2021Q2

REPORT INFORMATION
  Report Type: Spontaneous
  Country: US (occurrence: US)
  Receive Date: 20210521
  Receipt Date: 20210521
  Transmission Date: 20210717
  Serious: Yes (Other)
  Sender: FDA-Public Use
  Company Number: US-009507513-2105USA004108

PATIENT
  Sex: Male

DRUGS (7)
  1. OMEPRAZOLE. [Concomitant]
     Active Substance: OMEPRAZOLE
  2. LOPRESSOR [Concomitant]
     Active Substance: METOPROLOL TARTRATE
  3. ASPIRINE [Concomitant]
     Active Substance: ASPIRIN
  4. INSULIN [Suspect]
     Active Substance: INSULIN NOS
  5. FENOFIBRATE. [Concomitant]
     Active Substance: FENOFIBRATE
  6. KEYTRUDA [Suspect]
     Active Substance: PEMBROLIZUMAB
     Indication: NEUROENDOCRINE CARCINOMA OF THE SKIN
     Dosage: UNK, Q3W
     Route: 042
     Dates: start: 20210412
  7. INSULIN, REGULAR [Concomitant]
     Active Substance: INSULIN NOS

REACTIONS (3)
  - Increased appetite [Not Recovered/Not Resolved]
  - Diabetes mellitus [Not Recovered/Not Resolved]
  - Blood glucose increased [Not Recovered/Not Resolved]

NARRATIVE: CASE EVENT DATE: 20210512
